FAERS Safety Report 8590571-6 (Version None)
Quarter: 2012Q3

REPORT INFORMATION
  Report Type: 
  Country: None (occurrence: None)
  Receive Date: 20120813
  Receipt Date: 20120806
  Transmission Date: 20120928
  Serious: Yes (Death, Other)
  Sender: FDA-Public Use
  Company Number: FR-UCBSA-063278

PATIENT
  Age: 65 Year
  Sex: Male

DRUGS (10)
  1. PENTOTHAL [Concomitant]
     Dates: start: 20120410, end: 20120415
  2. PHENYTOIN SODIUM [Suspect]
     Dosage: VIA NASOGASTRIC TUBE
     Route: 048
     Dates: start: 20120414, end: 20120418
  3. ABILIFY [Concomitant]
  4. PIPORTIL [Concomitant]
  5. KEPPRA [Suspect]
     Dosage: DAILY DOSE : 2 G
     Route: 042
     Dates: start: 20120406, end: 20120422
  6. OLMESARTAN MEDOXOMIL AND HYDROCHLOROTHIZIDE [Concomitant]
  7. TRIHEXYPHENIDYL HYDROCHLORIDE [Concomitant]
  8. FOSPHENYTOIN SODIUM [Concomitant]
     Dosage: RECEIVED ON 10, 13, 19 AND 20-APR-2012; DAILY DOSE: 2 G
     Dates: start: 20120410, end: 20120420
  9. RABEPRAZOLE SODIUM [Suspect]
     Dosage: DAILY DOSE : 10 MG; VIA NASOGASTRIC TUBE
     Route: 048
     Dates: start: 20120407, end: 20120417
  10. AUGMENTIN '500' [Concomitant]
     Dosage: DAILY DOSE : 3 G
     Dates: start: 20120407, end: 20120414

REACTIONS (9)
  - PNEUMONIA ASPIRATION [None]
  - SEPSIS [None]
  - URINARY TRACT INFECTION [None]
  - DRUG RASH WITH EOSINOPHILIA AND SYSTEMIC SYMPTOMS [None]
  - ACUTE RESPIRATORY DISTRESS SYNDROME [None]
  - RASH MACULO-PAPULAR [None]
  - EOSINOPHILIA [None]
  - RENAL FAILURE ACUTE [None]
  - MULTI-ORGAN FAILURE [None]
